FAERS Safety Report 6358083-8 (Version None)
Quarter: 2009Q3

REPORT INFORMATION
  Report Type: 
  Country: None (occurrence: None)
  Receive Date: 20090916
  Receipt Date: 20090910
  Transmission Date: 20100115
  Serious: Yes (Other)
  Sender: FDA-Public Use
  Company Number: B0593073A

PATIENT
  Sex: Male
  Weight: 1.98 kg

DRUGS (12)
  1. ZANTAC [Suspect]
     Indication: PREMEDICATION
     Dosage: 50MG PER DAY
     Dates: start: 20050510, end: 20050510
  2. FLOLAN [Concomitant]
     Indication: PROPHYLAXIS
     Dates: start: 20050318
  3. UNKNOWN DRUG [Concomitant]
     Indication: PROPHYLAXIS
     Dates: start: 20050311
  4. FRAGMIN [Concomitant]
     Indication: ANTICOAGULANT THERAPY
     Dates: start: 20050510
  5. FERROMIA [Concomitant]
     Dosage: 50MG TWICE PER DAY
     Dates: start: 20050502
  6. MIDAZOLAM HCL [Concomitant]
     Indication: SEDATION
     Dosage: 3MG PER DAY
     Dates: start: 20050510, end: 20050510
  7. FENTANEST [Concomitant]
     Dates: start: 20050510, end: 20050511
  8. VECURONIUM BROMIDE [Concomitant]
     Indication: HYPOTONIA
     Dates: start: 20050510, end: 20050510
  9. MILLISROL (JAPAN) [Concomitant]
     Indication: VASODILATATION
     Dates: start: 20050510
  10. DOBUTREX [Concomitant]
     Dates: start: 20050510
  11. INOVAN [Concomitant]
     Dates: start: 20090510
  12. PRECEDEX [Concomitant]
     Dates: start: 20050510

REACTIONS (4)
  - DRUG EXPOSURE DURING PREGNANCY [None]
  - NEONATAL RESPIRATORY DISTRESS SYNDROME [None]
  - PREMATURE BABY [None]
  - RETINOPATHY OF PREMATURITY [None]
